FAERS Safety Report 17138517 (Version 1)
Quarter: 2019Q4

REPORT INFORMATION
  Report Type: Spontaneous
  Country: US (occurrence: US)
  Receive Date: 20191211
  Receipt Date: 20191211
  Transmission Date: 20200122
  Serious: No
  Sender: FDA-Public Use
  Company Number: US-UCBSA-2016026049

PATIENT
  Sex: Male
  Weight: 92.53 kg

DRUGS (4)
  1. VIMPAT [Suspect]
     Active Substance: LACOSAMIDE
     Indication: SEIZURE
     Dosage: 100 MG, 2X/DAY (BID)(ONE IN THE AM AND ONE AT NIGHT)
     Dates: start: 201503
  2. VIMPAT [Suspect]
     Active Substance: LACOSAMIDE
     Dosage: STARTED TAKING ONE FOURTH OF A TABLET IN THE MORNING AND ONE AT NIGHT
     Dates: start: 2016
  3. VIMPAT [Suspect]
     Active Substance: LACOSAMIDE
     Dosage: 100 MG, 2X/DAY (BID)(ONE IN THE AM AND ONE AT NIGHT)
     Dates: start: 201604
  4. VIMPAT [Suspect]
     Active Substance: LACOSAMIDE
     Dosage: TOOK HALF OF A TABLET IN THE MORNING AND ONE AT NIGHT

REACTIONS (3)
  - Seizure [Recovered/Resolved]
  - Intentional product misuse [Unknown]
  - Ocular hyperaemia [Not Recovered/Not Resolved]

NARRATIVE: CASE EVENT DATE: 2016
